FAERS Safety Report 20222644 (Version 1)
Quarter: 2021Q4

REPORT INFORMATION
  Report Type: Spontaneous
  Country: CA (occurrence: None)
  Receive Date: 20211223
  Receipt Date: 20211223
  Transmission Date: 20220303
  Serious: Yes (Disabling)
  Sender: FDA-Public Use
  Company Number: 2021A885206

PATIENT
  Age: 5 Year
  Sex: Female

DRUGS (2)
  1. ESOMEPRAZOLE MAGNESIUM [Suspect]
     Active Substance: ESOMEPRAZOLE MAGNESIUM
     Indication: Oesophageal atresia
     Dosage: 14.0MG UNKNOWN
     Route: 048
  2. ESOMEPRAZOLE MAGNESIUM [Suspect]
     Active Substance: ESOMEPRAZOLE MAGNESIUM
     Indication: Oesophageal atresia
     Dosage: 11.0MG UNKNOWN
     Route: 048

REACTIONS (5)
  - Decreased appetite [Recovered/Resolved]
  - Mood altered [Recovered/Resolved]
  - Headache [Recovered/Resolved]
  - Insomnia [Recovered/Resolved]
  - Vomiting [Recovered/Resolved]
